FAERS Safety Report 4567132-9 (Version None)
Quarter: 2005Q1

REPORT INFORMATION
  Report Type: 
  Country: None (occurrence: None)
  Receive Date: 20050201
  Receipt Date: 20050125
  Transmission Date: 20050727
  Serious: Yes (Disabling)
  Sender: FDA-Public Use
  Company Number: US-JNJFOC-20050106829

PATIENT
  Sex: Female

DRUGS (3)
  1. LEVAQUIN [Suspect]
  2. LEVAQUIN [Suspect]
     Indication: PNEUMONIA
  3. CORTISONE [Concomitant]

REACTIONS (3)
  - ARTHRALGIA [None]
  - CARTILAGE INJURY [None]
  - TENDON RUPTURE [None]
